FAERS Safety Report 5450188-9 (Version None)
Quarter: 2007Q3

REPORT INFORMATION
  Report Type: 
  Country: None (occurrence: None)
  Receive Date: 20070912
  Receipt Date: 20070829
  Transmission Date: 20080115
  Serious: Yes (Hospitalization)
  Sender: FDA-Public Use
  Company Number: AU-ELI_LILLY_AND_COMPANY-AU200609000506

PATIENT
  Age: 57 Year
  Sex: Male
  Weight: 86 kg

DRUGS (4)
  1. GEMCITABINE HCL [Suspect]
     Indication: BILE DUCT CANCER NON-RESECTABLE
     Dosage: 2040 MG, UNK
     Dates: start: 20060607
  2. CISPLATIN [Suspect]
     Indication: BILE DUCT CANCER NON-RESECTABLE
     Dosage: 40 MG, UNK
     Dates: start: 20060607
  3. OMEPRAZOLE [Concomitant]
     Indication: DYSPEPSIA
     Dosage: 20 MG, 2/D
     Route: 048
     Dates: start: 20060627
  4. VITAMIN CAP [Concomitant]
     Indication: PROPHYLAXIS
     Dosage: UNK, DAILY (1/D)
     Route: 048
     Dates: start: 20060627

REACTIONS (1)
  - STREPTOCOCCAL SEPSIS [None]
